FAERS Safety Report 17202149 (Version 2)
Quarter: 2020Q1

REPORT INFORMATION
  Report Type: Spontaneous
  Country: US (occurrence: US)
  Receive Date: 20191226
  Receipt Date: 20200114
  Transmission Date: 20200409
  Serious: Yes (Other)
  Sender: FDA-Public Use
  Company Number: US-ASTRAZENECA-2019SF86019

PATIENT
  Age: 804 Month
  Sex: Male
  Weight: 115.7 kg

DRUGS (4)
  1. BYDUREON [Suspect]
     Active Substance: EXENATIDE
     Indication: INSULIN RESISTANCE
     Route: 058
     Dates: start: 2018
  2. PLAVIX [Concomitant]
     Active Substance: CLOPIDOGREL BISULFATE
     Indication: MYOCARDIAL INFARCTION
     Route: 048
  3. BYDUREON BCISE [Suspect]
     Active Substance: EXENATIDE
     Indication: INSULIN RESISTANCE
     Route: 058
     Dates: start: 201910
  4. ENTRESTO [Concomitant]
     Active Substance: SACUBITRIL\VALSARTAN
     Indication: MYOCARDIAL INFARCTION
     Route: 048

REACTIONS (3)
  - Myocardial infarction [Unknown]
  - Injection site haemorrhage [Unknown]
  - Device issue [Unknown]

NARRATIVE: CASE EVENT DATE: 201810
